FAERS Safety Report 8793849 (Version 3)
Quarter: 2012Q4

REPORT INFORMATION
  Report Type: 
  Country: JP (occurrence: JP)
  Receive Date: 20120917
  Receipt Date: 20121108
  Transmission Date: 20130627
  Serious: Yes (Death)
  Sender: FDA-Public Use
  Company Number: PHHY2012JP079921

PATIENT
  Age: 90 Year
  Sex: Male

DRUGS (3)
  1. EXELON PATCH [Suspect]
     Indication: DEMENTIA
     Dosage: 4.5 mg daily
     Route: 062
  2. EXELON PATCH [Suspect]
     Dosage: 9 mg daily
     Route: 062
  3. EXELON PATCH [Suspect]
     Dosage: 13.5 mg daily
     Route: 062

REACTIONS (1)
  - Lung neoplasm malignant [Fatal]
